FAERS Safety Report 15983611 (Version 8)
Quarter: 2020Q2

REPORT INFORMATION
  Report Type: Report from Study
  Country: DE (occurrence: DE)
  Receive Date: 20190220
  Receipt Date: 20200414
  Transmission Date: 20200713
  Serious: Yes (Hospitalization, Other)
  Sender: FDA-Public Use
  Company Number: DE-ROCHE-2229092

PATIENT
  Age: 37 Year
  Sex: Female

DRUGS (10)
  1. OCREVUS [Suspect]
     Active Substance: OCRELIZUMAB
     Indication: RELAPSING-REMITTING MULTIPLE SCLEROSIS
     Route: 042
     Dates: start: 20181122
  2. OCREVUS [Suspect]
     Active Substance: OCRELIZUMAB
     Route: 042
     Dates: start: 20190815
  3. EFEROX [Concomitant]
     Active Substance: LEVOTHYROXINE SODIUM
     Dosage: 1-0-0
     Route: 065
  4. CITALOPRAM [Concomitant]
     Active Substance: CITALOPRAM HYDROBROMIDE
     Dosage: 1-0-0
     Route: 065
  5. SPASMEX [TROSPIUM CHLORIDE] [Concomitant]
     Route: 065
  6. CEFUROXIM [CEFUROXIME] [Suspect]
     Active Substance: CEFUROXIME
     Indication: NEPHRITIS
     Route: 042
  7. METHIONIN [Concomitant]
     Active Substance: METHIONINE
     Dosage: 2-0-0
     Route: 065
  8. BIFIDOBACTERIUM LACTIS;LACTOBACILLUS ACIDOPHILUS [Concomitant]
  9. SODIUM PROPIONATE [Concomitant]
     Active Substance: SODIUM PROPIONATE
     Dosage: 1-0-0
     Route: 065
  10. DEKRISTOL [Concomitant]
     Active Substance: CHOLECALCIFEROL
     Route: 065

REACTIONS (9)
  - Abdominal discomfort [Recovered/Resolved]
  - Infection [Not Recovered/Not Resolved]
  - Nephritis [Recovered/Resolved]
  - Clostridial infection [Recovered/Resolved]
  - Nasopharyngitis [Recovering/Resolving]
  - Fatigue [Recovered/Resolved]
  - Herpes virus infection [Recovered/Resolved]
  - Gingivitis [Recovered/Resolved]
  - Fatigue [Recovered/Resolved]

NARRATIVE: CASE EVENT DATE: 20181122
